FAERS Safety Report 6355955-5 (Version None)
Quarter: 2009Q3

REPORT INFORMATION
  Report Type: 
  Country: None (occurrence: None)
  Receive Date: 20090915
  Receipt Date: 20090907
  Transmission Date: 20100115
  Serious: Yes (Hospitalization)
  Sender: FDA-Public Use
  Company Number: CH-ROCHE-655151

PATIENT
  Age: 55 Year
  Sex: Male

DRUGS (8)
  1. TAMIFLU [Suspect]
     Route: 048
     Dates: start: 20090810, end: 20090819
  2. FRAGMIN [Concomitant]
     Dosage: SHORT TERM TREATMENT
     Route: 058
     Dates: start: 20090813
  3. KLACID [Concomitant]
     Dosage: SHORT TERM TREATMENT
     Route: 048
     Dates: start: 20090813
  4. ROCEPHIN [Concomitant]
     Dosage: SHORT TERM TREATMENT
     Route: 041
  5. ATROVENT [Concomitant]
     Dosage: FORM: INHALER SOLUTION 0.125 MG/ML, SHORT TERM TREATMENT
  6. VENTOLIN [Concomitant]
     Dosage: FORM: METERED DOSE INHALER, SHORT TERM TREATMENT
  7. MORPHINE [Concomitant]
     Dosage: DOSAGE REGIMEN: CYCLIC, NAME: MORPHIN HCL SINETICA SOL. 10 MG/ML
     Route: 041
  8. DORMICUM [Concomitant]
     Dosage: DOSAGE REGIMEN: CYCLIC, INJECTION SOLUTION 5MG/ML
     Route: 041

REACTIONS (2)
  - DELIRIUM [None]
  - PERSONALITY CHANGE [None]
